FAERS Safety Report 6138155-3 (Version None)
Quarter: 2009Q1

REPORT INFORMATION
  Report Type: 
  Country: None (occurrence: None)
  Receive Date: 20090331
  Receipt Date: 20090323
  Transmission Date: 20090719
  Serious: Yes (Other)
  Sender: FDA-Public Use
  Company Number: IN-ABBOTT-09P-078-0564105-00

PATIENT
  Age: 6 Year
  Sex: Female

DRUGS (2)
  1. VALPROATE SODIUM [Suspect]
     Indication: LENNOX-GASTAUT SYNDROME
  2. CLONAZEPAM [Concomitant]
     Indication: LENNOX-GASTAUT SYNDROME

REACTIONS (4)
  - CONFUSIONAL STATE [None]
  - CONVULSION [None]
  - HYPERAMMONAEMIA [None]
  - METABOLIC ENCEPHALOPATHY [None]
